FAERS Safety Report 8600374-1 (Version None)
Quarter: 2012Q3

REPORT INFORMATION
  Report Type: 
  Country: None (occurrence: None)
  Receive Date: 20120817
  Receipt Date: 20120813
  Transmission Date: 20120928
  Serious: No
  Sender: FDA-Public Use
  Company Number: US-PFIZER INC-2012151077

PATIENT
  Age: 69 Year
  Sex: Female
  Weight: 65.76 kg

DRUGS (5)
  1. LYRICA [Suspect]
     Dosage: 225 MG, 3X/DAY
     Route: 048
     Dates: start: 20110101
  2. TOPROL-XL [Concomitant]
     Indication: BLOOD PRESSURE ABNORMAL
     Dosage: 25 MG, DAILY
     Dates: start: 20110101
  3. TRAMADOL [Concomitant]
     Indication: BACK PAIN
     Dosage: 100 MG, 3X/DAY
     Dates: start: 20120101
  4. BACTRIM [Concomitant]
     Indication: PROPHYLAXIS URINARY TRACT INFECTION
     Dosage: UNK, DAILY
     Dates: start: 20110101
  5. LYRICA [Suspect]
     Indication: CHRONIC INFLAMMATORY DEMYELINATING POLYRADICULONEUROPATHY
     Dosage: 250 MG, 3X/DAY
     Route: 048
     Dates: start: 20070101

REACTIONS (6)
  - GAIT DISTURBANCE [None]
  - OVERDOSE [None]
  - OFF LABEL USE [None]
  - PARAESTHESIA [None]
  - IMPAIRED DRIVING ABILITY [None]
  - HYPOAESTHESIA [None]
